FAERS Safety Report 7478681-8 (Version None)
Quarter: 2011Q2

REPORT INFORMATION
  Report Type: 
  Country: None (occurrence: None)
  Receive Date: 20110511
  Receipt Date: 20110511
  Transmission Date: 20111010
  Serious: No
  Sender: FDA-Public Use
  Company Number: None

PATIENT
  Sex: Female

DRUGS (8)
  1. AMLODIPINE [Suspect]
     Dosage: 1.5 TAB PO DAILY
     Route: 048
     Dates: start: 20091208, end: 20091231
  2. POTASSIUM CHLORIDE [Concomitant]
  3. LISINOPRIL [Concomitant]
  4. CRESTOR [Concomitant]
  5. AMARYL [Concomitant]
  6. HYDROCHLOROTHIAZIDE [Concomitant]
  7. LANTUS [Concomitant]
  8. METFORMIN HCL [Concomitant]

REACTIONS (3)
  - GRAVITATIONAL OEDEMA [None]
  - LABILE BLOOD PRESSURE [None]
  - PRODUCT SUBSTITUTION ISSUE [None]
